FAERS Safety Report 9467650 (Version 1)
Quarter: 2013Q3

REPORT INFORMATION
  Report Type: Spontaneous
  Country: US (occurrence: None)
  Receive Date: 20130819
  Receipt Date: 20130819
  Transmission Date: 20140515
  Serious: Yes (Hospitalization)
  Sender: FDA-Public Use
  Company Number: None

PATIENT
  Age: 19 Year
  Sex: Female
  Weight: 48.99 kg

DRUGS (2)
  1. CYMBALTA [Suspect]
     Indication: DEPRESSION
     Dosage: 1 CAPSULE BY M OUTH  ONCE DAILY  TAKEN BY MOUTH
     Route: 048
     Dates: start: 20130725, end: 20130807
  2. CYMBALTA [Suspect]
     Indication: ANXIETY
     Dosage: 1 CAPSULE BY M OUTH  ONCE DAILY  TAKEN BY MOUTH
     Route: 048
     Dates: start: 20130725, end: 20130807

REACTIONS (3)
  - Thought blocking [None]
  - Speech disorder [None]
  - Activities of daily living impaired [None]
